FAERS Safety Report 21005749 (Version 5)
Quarter: 2022Q3

REPORT INFORMATION
  Report Type: Spontaneous
  Country: BR (occurrence: BR)
  Receive Date: 20220624
  Receipt Date: 20220921
  Transmission Date: 20221027
  Serious: Yes (Other)
  Sender: FDA-Public Use
  Company Number: BR-NOVARTISPH-NVSC2022BR142635

PATIENT
  Age: 22 Year
  Sex: Male
  Weight: 69.8 kg

DRUGS (29)
  1. CYCLOSPORINE [Suspect]
     Active Substance: CYCLOSPORINE
     Indication: Prophylaxis against transplant rejection
     Dosage: 339 MG (1 DAY PER 3 HRS)
     Route: 065
     Dates: start: 20220530
  2. CYCLOSPORINE [Suspect]
     Active Substance: CYCLOSPORINE
     Indication: Immunosuppression
     Dosage: 339 MG (1 DAY PER 3 HRS)
     Route: 065
     Dates: start: 20220530
  3. CYCLOSPORINE [Suspect]
     Active Substance: CYCLOSPORINE
     Dosage: 300 MG PER 6 HOURS
     Route: 042
     Dates: start: 20220530, end: 20220612
  4. CYCLOSPORINE [Suspect]
     Active Substance: CYCLOSPORINE
     Dosage: 300 MG PER 6 HOURS
     Route: 042
  5. ACYCLOVIR [Suspect]
     Active Substance: ACYCLOVIR
     Indication: Bone marrow transplant rejection
     Dosage: 600 MG (200 MG, 400 MG), Q12H
     Route: 065
  6. ACYCLOVIR [Suspect]
     Active Substance: ACYCLOVIR
     Dosage: 400 MG
     Route: 048
  7. ONDANSETRON [Suspect]
     Active Substance: ONDANSETRON
     Indication: Nausea
     Dosage: 8 MG
     Route: 048
  8. FILGRASTIM [Suspect]
     Active Substance: FILGRASTIM
     Indication: Neutropenia
     Dosage: 300 UG
     Route: 065
  9. FILGRASTIM [Suspect]
     Active Substance: FILGRASTIM
     Dosage: 300 MG
     Route: 058
  10. BACTRIM [Concomitant]
     Active Substance: SULFAMETHOXAZOLE\TRIMETHOPRIM
     Indication: Prophylaxis against transplant rejection
     Dosage: 1 DOSAGE FORM (EVERY 12 HOURS, 3 TIMES FOR WEEK)
     Route: 065
  11. OMEPRAZOLE [Concomitant]
     Active Substance: OMEPRAZOLE
     Indication: Product used for unknown indication
     Dosage: 200 MG, QD
     Route: 065
  12. ACETAMINOPHEN [Concomitant]
     Active Substance: ACETAMINOPHEN
     Indication: Product used for unknown indication
     Dosage: UNK
     Route: 065
  13. VITAMINA D [Concomitant]
     Indication: Product used for unknown indication
     Dosage: UNK, QW
     Route: 065
  14. ENTECAVIR [Concomitant]
     Active Substance: ENTECAVIR
     Indication: Product used for unknown indication
     Dosage: 0.5 MG, QD
     Route: 065
  15. URSODIOL [Concomitant]
     Active Substance: URSODIOL
     Indication: Product used for unknown indication
     Dosage: 300 MG
     Route: 065
  16. SULFAMETHOXAZOLE AND TRIMETHOPRIM [Concomitant]
     Active Substance: SULFAMETHOXAZOLE\TRIMETHOPRIM
     Indication: Prophylaxis against transplant rejection
     Dosage: 480 MG (400MG+80 MG)
     Route: 065
  17. POSACONAZOLE [Concomitant]
     Active Substance: POSACONAZOLE
     Indication: Prophylaxis against transplant rejection
     Dosage: 200 MG
     Route: 065
  18. MYCOPHENOLATE MOFETIL [Concomitant]
     Active Substance: MYCOPHENOLATE MOFETIL
     Indication: Prophylaxis against transplant rejection
     Dosage: 1000 MG
     Route: 065
  19. MYCOPHENOLATE MOFETIL [Concomitant]
     Active Substance: MYCOPHENOLATE MOFETIL
     Indication: Immunosuppression
  20. CEFEPIME HYDROCHLORIDE [Concomitant]
     Active Substance: CEFEPIME HYDROCHLORIDE
     Indication: Prophylaxis against transplant rejection
     Dosage: 2000 MG
     Route: 065
  21. OXYGEN [Concomitant]
     Active Substance: OXYGEN
     Indication: Product used for unknown indication
     Dosage: 1 CN 1L/MIN
     Route: 065
  22. CETOROLACO DE TROMETAMINA [Concomitant]
     Indication: Product used for unknown indication
     Dosage: 30 MG
     Route: 065
  23. DIPHENHYDRAMINE [Concomitant]
     Active Substance: DIPHENHYDRAMINE
     Indication: Product used for unknown indication
     Route: 065
  24. MORPHINE [Concomitant]
     Active Substance: MORPHINE
     Indication: Product used for unknown indication
     Dosage: 4 MG
     Route: 065
  25. URSODIOL [Concomitant]
     Active Substance: URSODIOL
     Indication: Product used for unknown indication
     Dosage: 300 MG
     Route: 048
  26. SULFAMETHOXAZOLE AND TRIMETHOPRIM [Concomitant]
     Active Substance: SULFAMETHOXAZOLE\TRIMETHOPRIM
     Indication: Bone marrow transplant rejection
     Dosage: UNK
     Route: 048
  27. POSACONAZOLE [Concomitant]
     Active Substance: POSACONAZOLE
     Indication: Bone marrow transplant rejection
     Dosage: 200 MG
     Route: 048
  28. MYCOPHENOLATE MOFETIL [Concomitant]
     Active Substance: MYCOPHENOLATE MOFETIL
     Indication: Immunosuppression
     Dosage: 100 MG
     Route: 048
  29. CEFEPIME [Concomitant]
     Active Substance: CEFEPIME HYDROCHLORIDE
     Indication: Prophylaxis
     Dosage: 2000 MG
     Route: 042

REACTIONS (13)
  - Hypoxia [Recovered/Resolved]
  - Pruritus [Recovered/Resolved]
  - Cough [Recovered/Resolved]
  - Erythema [Recovered/Resolved]
  - Tachycardia [Recovered/Resolved]
  - Tachypnoea [Recovered/Resolved]
  - Hyperaemia [Recovered/Resolved]
  - Tremor [Recovered/Resolved]
  - Pain [Recovered/Resolved]
  - Discomfort [Recovered/Resolved]
  - Oxygen saturation decreased [Recovered/Resolved]
  - Heart rate increased [Recovered/Resolved]
  - Body temperature increased [Recovered/Resolved]

NARRATIVE: CASE EVENT DATE: 20220601
